FAERS Safety Report 4644715-9 (Version None)
Quarter: 2005Q2

REPORT INFORMATION
  Report Type: 
  Country: None (occurrence: None)
  Receive Date: 20050426
  Receipt Date: 20050420
  Transmission Date: 20051028
  Serious: Yes (Other)
  Sender: FDA-Public Use
  Company Number: US-JNJFOC-20050405165

PATIENT
  Age: 6 Year
  Sex: Male
  Weight: 23.59 kg

DRUGS (4)
  1. CONCERTA [Suspect]
     Route: 049
  2. CONCERTA [Suspect]
     Route: 049
  3. TRILEPTAL [Concomitant]
  4. LORATADINE [Concomitant]
     Dosage: DAILY

REACTIONS (2)
  - GRAND MAL CONVULSION [None]
  - THERAPEUTIC RESPONSE DECREASED [None]
